FAERS Safety Report 23127763 (Version 3)
Quarter: 2023Q4

REPORT INFORMATION
  Report Type: Spontaneous
  Country: US (occurrence: US)
  Receive Date: 20231031
  Receipt Date: 20231122
  Transmission Date: 20240109
  Serious: No
  Sender: FDA-Public Use
  Company Number: US-SANOFI-01813476

PATIENT
  Age: 61 Year
  Sex: Male

DRUGS (1)
  1. DUPIXENT [Suspect]
     Active Substance: DUPILUMAB
     Indication: Eosinophilic oesophagitis
     Dosage: 2 ML, QOW
     Route: 065

REACTIONS (6)
  - Oesophageal irritation [Unknown]
  - Therapeutic response shortened [Unknown]
  - Injection site pain [Unknown]
  - Condition aggravated [Unknown]
  - Injection site erythema [Unknown]
  - Off label use [Unknown]
